FAERS Safety Report 15182087 (Version 1)
Quarter: 2018Q3

REPORT INFORMATION
  Report Type: Spontaneous
  Country: US (occurrence: US)
  Receive Date: 20180624
  Receipt Date: 20180624
  Transmission Date: 20181010
  Serious: No
  Sender: FDA-Public Use
  Company Number: None

PATIENT

DRUGS (3)
  1. CETIRIZINE [Suspect]
     Active Substance: CETIRIZINE HYDROCHLORIDE
     Indication: HYPERSENSITIVITY
     Route: 048
     Dates: start: 20150301, end: 20180616
  2. VENTOLIN [Concomitant]
     Active Substance: ALBUTEROL SULFATE
  3. BUDNESONIDE/FORMOTEROL [Concomitant]

REACTIONS (1)
  - Pruritus generalised [None]
